FAERS Safety Report 18527986 (Version 2)
Quarter: 2021Q1

REPORT INFORMATION
  Report Type: Report from Study
  Country: US (occurrence: US)
  Receive Date: 20201120
  Receipt Date: 20210128
  Transmission Date: 20210419
  Serious: No
  Sender: FDA-Public Use
  Company Number: US-JNJFOC-20201122959

PATIENT
  Age: 40 Year
  Sex: Female
  Weight: 133.52 kg

DRUGS (13)
  1. CATAPRES [Concomitant]
     Active Substance: CLONIDINE HYDROCHLORIDE
     Indication: RESTLESSNESS
     Dosage: HALF TO 1 AS NEED
  2. GLUCOTROL XL [Concomitant]
     Active Substance: GLIPIZIDE
  3. DOXEPINE [Concomitant]
     Active Substance: DOXEPIN
     Indication: INSOMNIA
     Dosage: 3 MG TO 6 MG NIGHTLY
  4. LISINOPRIL. [Concomitant]
     Active Substance: LISINOPRIL
  5. SPRAVATO [Suspect]
     Active Substance: ESKETAMINE
     Indication: DEPRESSION
     Dosage: 56 MG, 2 TOTAL DOSES
     Dates: start: 20200107, end: 20200110
  6. REXULTI [Concomitant]
     Active Substance: BREXPIPRAZOLE
     Indication: DEPRESSION
  7. PEPCID [Concomitant]
     Active Substance: FAMOTIDINE
  8. HYDRODIURIL [Concomitant]
     Active Substance: HYDROCHLOROTHIAZIDE
  9. SPRAVATO [Suspect]
     Active Substance: ESKETAMINE
     Dosage: 84 MG, 45 TOTAL DOSES
     Dates: start: 20200114, end: 20201103
  10. INDERAL [Concomitant]
     Active Substance: PROPRANOLOL HYDROCHLORIDE
  11. SPRAVATO [Suspect]
     Active Substance: ESKETAMINE
     Dates: start: 20201110, end: 20201110
  12. CYMBALTA [Concomitant]
     Active Substance: DULOXETINE HYDROCHLORIDE
     Indication: DEPRESSION
  13. PRILOSEC [Concomitant]
     Active Substance: OMEPRAZOLE MAGNESIUM

REACTIONS (2)
  - Anxiety [Recovered/Resolved]
  - Dissociation [Recovered/Resolved]

NARRATIVE: CASE EVENT DATE: 20201103
